FAERS Safety Report 9992976 (Version 1)
Quarter: 2014Q1

REPORT INFORMATION
  Report Type: Spontaneous
  Country: US (occurrence: US)
  Receive Date: 20140310
  Receipt Date: 20140310
  Transmission Date: 20141002
  Serious: No
  Sender: FDA-Public Use
  Company Number: US-ABBVIE-13P-163-1069130-00

PATIENT
  Age: 41 Year
  Sex: Female
  Weight: 116.22 kg

DRUGS (10)
  1. LEUPROLIDE ACETATE DEPOT [Suspect]
     Indication: DYSMENORRHOEA
     Dosage: 1 DOSE
     Route: 030
     Dates: start: 20130107
  2. LEUPROLIDE ACETATE DEPOT [Suspect]
     Indication: PREMENSTRUAL DYSPHORIC DISORDER
  3. LEUPROLIDE ACETATE DEPOT [Suspect]
     Indication: PREMENSTRUAL SYNDROME
  4. LEUPROLIDE ACETATE DEPOT [Suspect]
     Indication: PELVIC PAIN
  5. LEUPROLIDE ACETATE DEPOT [Suspect]
     Indication: ADENOMYOSIS
  6. ABILIFY [Concomitant]
     Indication: PRODUCT USED FOR UNKNOWN INDICATION
     Route: 048
  7. GABAPENTIN [Concomitant]
     Indication: PRODUCT USED FOR UNKNOWN INDICATION
  8. XOPENEX HFA [Concomitant]
     Indication: PRODUCT USED FOR UNKNOWN INDICATION
     Route: 055
  9. FLOVENT [Concomitant]
     Indication: PRODUCT USED FOR UNKNOWN INDICATION
  10. SERTRALINE [Concomitant]
     Indication: PRODUCT USED FOR UNKNOWN INDICATION

REACTIONS (2)
  - Menometrorrhagia [Not Recovered/Not Resolved]
  - Off label use [Not Recovered/Not Resolved]
